FAERS Safety Report 21359881 (Version 1)
Quarter: 2022Q3

REPORT INFORMATION
  Report Type: Spontaneous
  Country: US (occurrence: US)
  Receive Date: 20220921
  Receipt Date: 20220921
  Transmission Date: 20221026
  Serious: No
  Sender: FDA-Public Use
  Company Number: US-GLENMARK PHARMACEUTICALS-2022GMK073202

PATIENT

DRUGS (7)
  1. GABAPENTIN [Suspect]
     Active Substance: GABAPENTIN
     Indication: Restless legs syndrome
     Dosage: 600 MILLIGRAM, OD
     Route: 048
     Dates: start: 2017
  2. ATORVASTATIN [Concomitant]
     Active Substance: ATORVASTATIN
     Indication: Blood cholesterol increased
     Dosage: 40 MILLIGRAM, OD
     Route: 048
  3. LISINOPRIL [Concomitant]
     Active Substance: LISINOPRIL
     Indication: Hypertension
     Dosage: 40 MILLIGRAM, OD
     Route: 048
     Dates: start: 2013
  4. METOPROLOL SUCCINATE [Concomitant]
     Active Substance: METOPROLOL SUCCINATE
     Indication: Atrial fibrillation
     Dosage: 50 MILLIGRAM, OD
     Route: 048
     Dates: start: 2013
  5. HYDROCHLOROTHIAZIDE [Concomitant]
     Active Substance: HYDROCHLOROTHIAZIDE
     Indication: Hypertension
     Dosage: 12.5 MILLIGRAM, OD
     Route: 048
  6. XARELTO [Concomitant]
     Active Substance: RIVAROXABAN
     Indication: Atrial fibrillation
     Dosage: 40 MILLIGRAM, OD
     Route: 048
     Dates: start: 2018
  7. COLCHICINE [Concomitant]
     Active Substance: COLCHICINE
     Indication: Chondrocalcinosis pyrophosphate
     Dosage: 0.6 MILLIGRAM, BID
     Route: 048
     Dates: start: 2018

REACTIONS (2)
  - Glycosylated haemoglobin increased [Unknown]
  - Drug effective for unapproved indication [Unknown]

NARRATIVE: CASE EVENT DATE: 20220301
